FAERS Safety Report 6877510-0 (Version None)
Quarter: 2010Q3

REPORT INFORMATION
  Report Type: 
  Country: None (occurrence: None)
  Receive Date: 20100727
  Receipt Date: 20091118
  Transmission Date: 20110219
  Serious: No
  Sender: FDA-Public Use
  Company Number: US-ABBOTT-09P-163-0610287-00

PATIENT
  Sex: Female

DRUGS (1)
  1. SYNTHROID [Suspect]
     Indication: HYPOTHYROIDISM
     Dates: start: 19740101

REACTIONS (5)
  - DIZZINESS [None]
  - FATIGUE [None]
  - FOOD ALLERGY [None]
  - SOMNOLENCE [None]
  - WEIGHT DECREASED [None]
